FAERS Safety Report 5029968-X (Version None)
Quarter: 2006Q2

REPORT INFORMATION
  Report Type: 
  Country: None (occurrence: None)
  Receive Date: 20060620
  Receipt Date: 20060606
  Transmission Date: 20061013
  Serious: Yes (Hospitalization)
  Sender: FDA-Public Use
  Company Number: JP-MERCK-0606USA02427

PATIENT
  Age: 90 Year
  Sex: Female

DRUGS (5)
  1. PRIMAXIN [Suspect]
     Route: 065
     Dates: start: 20060602, end: 20060606
  2. MAXIPIME [Concomitant]
     Route: 042
     Dates: end: 20060602
  3. DASEN [Concomitant]
     Route: 048
  4. TRANSAMIN [Concomitant]
     Route: 065
  5. ADONA [Concomitant]
     Route: 065

REACTIONS (2)
  - PLATELET COUNT DECREASED [None]
  - PURPURA [None]
